FAERS Safety Report 4862758-7 (Version None)
Quarter: 2005Q4

REPORT INFORMATION
  Report Type: 
  Country: None (occurrence: None)
  Receive Date: 20051221
  Receipt Date: 20051209
  Transmission Date: 20060501
  Serious: Yes (Other)
  Sender: FDA-Public Use
  Company Number: CA-BRISTOL-MYERS SQUIBB COMPANY-13220926

PATIENT
  Age: 29 Year
  Sex: Male

DRUGS (6)
  1. TEQUIN [Suspect]
  2. HEPARIN [Concomitant]
  3. LOSEC MUPS [Concomitant]
  4. METOCLOPRAMIDE [Concomitant]
     Route: 042
  5. MIDAZOLAM [Concomitant]
  6. MORPHINE [Concomitant]

REACTIONS (1)
  - HYPERGLYCAEMIA [None]
